FAERS Safety Report 8515739-6 (Version None)
Quarter: 2012Q3

REPORT INFORMATION
  Report Type: 
  Country: None (occurrence: None)
  Receive Date: 20120705
  Receipt Date: 20120625
  Transmission Date: 20120928
  Serious: Yes (Other)
  Sender: FDA-Public Use
  Company Number: DSA_58008_2012

PATIENT
  Sex: Male

DRUGS (9)
  1. SIMVASTATIN [Concomitant]
  2. WELLBUTRIN [Suspect]
     Indication: PRODUCT USED FOR UNKNOWN INDICATION
     Dosage: (150 MG QD)
     Dates: start: 20120401, end: 20120505
  3. ALLOPURINOL [Concomitant]
  4. DIAMICRON [Concomitant]
  5. PANTOPRAZOLE [Concomitant]
  6. EMCORETIC [Concomitant]
  7. MEDROL [Concomitant]
  8. ASPIRIN [Concomitant]
  9. PLAVIX [Concomitant]

REACTIONS (3)
  - SYSTEMIC LUPUS ERYTHEMATOSUS [None]
  - MENTAL DISORDER [None]
  - CONDITION AGGRAVATED [None]
